FAERS Safety Report 20549766 (Version 1)
Quarter: 2022Q1

REPORT INFORMATION
  Report Type: Spontaneous
  Country: US (occurrence: US)
  Receive Date: 20220304
  Receipt Date: 20220304
  Transmission Date: 20220423
  Serious: No
  Sender: FDA-Public Use
  Company Number: US-PURDUE-USA-2021-0286150

PATIENT
  Sex: Female
  Weight: 62.585 kg

DRUGS (2)
  1. BUPRENORPHINE [Suspect]
     Active Substance: BUPRENORPHINE
     Indication: Pain
     Dosage: 10 MCG/HR, WEEKLY (ONE PATCH)
     Route: 062
     Dates: start: 2020
  2. BUPRENORPHINE [Suspect]
     Active Substance: BUPRENORPHINE
     Dosage: UNKNOWN
     Route: 062

REACTIONS (4)
  - Erythema [Unknown]
  - Pruritus [Unknown]
  - Acute stress disorder [Unknown]
  - Product complaint [Unknown]
